FAERS Safety Report 5288062-3 (Version None)
Quarter: 2007Q1

REPORT INFORMATION
  Report Type: 
  Country: None (occurrence: None)
  Receive Date: 20070330
  Receipt Date: 20070320
  Transmission Date: 20070707
  Serious: No
  Sender: FDA-Public Use
  Company Number: A0548830A

PATIENT
  Age: 50 Year
  Sex: Male

DRUGS (2)
  1. WELLBUTRIN SR [Suspect]
     Indication: DEPRESSION
     Dosage: 150 MG / TWICE PER DAY / INTRANASAL
     Route: 045
  2. OLANZAPINE [Concomitant]

REACTIONS (5)
  - CONVULSION [None]
  - EUPHORIC MOOD [None]
  - INCORRECT ROUTE OF DRUG ADMINISTRATION [None]
  - INTENTIONAL DRUG MISUSE [None]
  - TACHYCARDIA [None]
